FAERS Safety Report 5391186-3 (Version None)
Quarter: 2007Q3

REPORT INFORMATION
  Report Type: 
  Country: None (occurrence: None)
  Receive Date: 20070719
  Receipt Date: 20070711
  Transmission Date: 20080115
  Serious: Yes (Other)
  Sender: FDA-Public Use
  Company Number: FR-NOVOPROD-261461

PATIENT
  Age: 36 Year
  Sex: Female

DRUGS (5)
  1. LEVEMIR [Suspect]
     Indication: TYPE 1 DIABETES MELLITUS
     Dosage: 20 IU, QD
     Route: 058
     Dates: start: 20050101
  2. NOVORAPID FLEXPEN [Suspect]
     Indication: TYPE 1 DIABETES MELLITUS
     Dosage: 18-24 UNITS
     Route: 058
  3. VENTOLINE                          /00139501/ [Concomitant]
     Indication: ASTHMA
  4. SPECIAFOLDINE [Concomitant]
  5. TARDYFERON B9 [Concomitant]

REACTIONS (2)
  - PRE-ECLAMPSIA [None]
  - PREGNANCY [None]
